FAERS Safety Report 10881612 (Version 1)
Quarter: 2015Q1

REPORT INFORMATION
  Report Type: Spontaneous
  Country: NO (occurrence: NO)
  Receive Date: 20150303
  Receipt Date: 20150303
  Transmission Date: 20150721
  Serious: Yes (Disabling)
  Sender: FDA-Public Use
  Company Number: NO-TEVA-544300ISR

PATIENT
  Sex: Female

DRUGS (5)
  1. CLARITHROMYCIN. [Suspect]
     Active Substance: CLARITHROMYCIN
     Indication: ATYPICAL MYCOBACTERIAL INFECTION
     Dosage: 500 MILLIGRAM DAILY;
     Route: 048
     Dates: start: 20130125, end: 20140303
  2. PREDNISOLON [Concomitant]
     Active Substance: PREDNISOLONE
  3. MYAMBUTOL [Suspect]
     Active Substance: ETHAMBUTOL HYDROCHLORIDE
     Indication: ATYPICAL MYCOBACTERIAL INFECTION
     Dosage: 800 MILLIGRAM DAILY;
     Route: 048
     Dates: start: 20130125, end: 20140303
  4. RIFAMPICIN [Concomitant]
     Active Substance: RIFAMPIN
     Indication: ATYPICAL MYCOBACTERIAL INFECTION
     Dosage: 600 MILLIGRAM DAILY;
     Route: 048
     Dates: start: 20130125, end: 20140303
  5. METHOTREXATE [Concomitant]
     Active Substance: METHOTREXATE
     Dates: end: 2015

REACTIONS (3)
  - Hypoaesthesia [Not Recovered/Not Resolved]
  - Polyneuropathy [Not Recovered/Not Resolved]
  - Hypoaesthesia [Not Recovered/Not Resolved]

NARRATIVE: CASE EVENT DATE: 2013
